FAERS Safety Report 7262914-7 (Version None)
Quarter: 2011Q1

REPORT INFORMATION
  Report Type: 
  Country: None (occurrence: None)
  Receive Date: 20110130
  Receipt Date: 20100907
  Transmission Date: 20110831
  Serious: No
  Sender: FDA-Public Use
  Company Number: US-ABBOTT-10P-163-0668757-00

PATIENT
  Age: 19 Year
  Sex: Male

DRUGS (6)
  1. FLORINEF [Concomitant]
     Indication: PRODUCT USED FOR UNKNOWN INDICATION
  2. INDERAL [Concomitant]
     Indication: PRODUCT USED FOR UNKNOWN INDICATION
  3. HUMIRA [Suspect]
     Dosage: 80 MG LOADING DOSE
  4. HUMIRA [Suspect]
     Dosage: 160 MG LOADING DOSE
     Dates: start: 20100828, end: 20100828
  5. CELEXA [Concomitant]
     Indication: PRODUCT USED FOR UNKNOWN INDICATION
  6. HUMIRA [Suspect]

REACTIONS (6)
  - BLISTER [None]
  - URTICARIA [None]
  - PAIN [None]
  - HYPERSENSITIVITY [None]
  - JOINT SWELLING [None]
  - RASH ERYTHEMATOUS [None]
